FAERS Safety Report 5362996-3 (Version None)
Quarter: 2007Q2

REPORT INFORMATION
  Report Type: 
  Country: None (occurrence: None)
  Receive Date: 20070619
  Receipt Date: 20070611
  Transmission Date: 20071010
  Serious: Yes (Hospitalization)
  Sender: FDA-Public Use
  Company Number: US-GENENTECH-242354

PATIENT
  Sex: Male
  Weight: 63.2 kg

DRUGS (3)
  1. BEVACIZUMAB [Suspect]
     Indication: BLADDER CANCER
     Dosage: 15 MG/M2, 2 DOSES
     Dates: start: 20070412, end: 20070504
  2. GEMCITABINE [Suspect]
     Indication: BLADDER CANCER
     Dosage: 800 MG/M2, 4 DOSES
     Route: 042
     Dates: start: 20070412, end: 20070511
  3. CISPLATIN [Suspect]
     Indication: BLADDER CANCER
     Dosage: 70 MG/M2, 2 DOSES
     Route: 042
     Dates: start: 20070412, end: 20070504

REACTIONS (4)
  - DEVICE MALFUNCTION [None]
  - NEUTROPENIA [None]
  - PAIN [None]
  - URINARY TRACT INFECTION [None]
